FAERS Safety Report 10510446 (Version 1)
Quarter: 2014Q4

REPORT INFORMATION
  Report Type: Spontaneous
  Country: US (occurrence: None)
  Receive Date: 20141009
  Receipt Date: 20141009
  Transmission Date: 20150528
  Serious: Yes (Hospitalization)
  Sender: FDA-Public Use
  Company Number: None

PATIENT
  Age: 74 Year
  Sex: Male
  Weight: 86.4 kg

DRUGS (1)
  1. IBRUTINIB [Suspect]
     Active Substance: IBRUTINIB
     Indication: MANTLE CELL LYMPHOMA
     Route: 048
     Dates: start: 20140601, end: 20140601

REACTIONS (4)
  - Diarrhoea [None]
  - Hypotension [None]
  - Mantle cell lymphoma [None]
  - Disease progression [None]

NARRATIVE: CASE EVENT DATE: 20140601
